FAERS Safety Report 16315378 (Version 5)
Quarter: 2019Q3

REPORT INFORMATION
  Report Type: Spontaneous
  Country: US (occurrence: US)
  Receive Date: 20190515
  Receipt Date: 20190903
  Transmission Date: 20191004
  Serious: No
  Sender: FDA-Public Use
  Company Number: US-SA-2019SA124465

PATIENT
  Age: 51 Year
  Sex: Female
  Weight: 127.89 kg

DRUGS (31)
  1. ONDANSETRON [Concomitant]
     Active Substance: ONDANSETRON
     Dosage: 4 MG, PRN
     Route: 048
     Dates: start: 20190430
  2. PAZEO [Concomitant]
     Active Substance: OLOPATADINE HYDROCHLORIDE
     Dosage: 1 DF (DAILY), QD, BOTH EYES
     Route: 050
     Dates: start: 20190430
  3. ZYRTEC [Concomitant]
     Active Substance: CETIRIZINE HYDROCHLORIDE
     Dosage: 10 MG,1 TAB,  QD
     Route: 048
     Dates: start: 20190404
  4. GEODON [ZIPRASIDONE HYDROCHLORIDE] [Concomitant]
     Dosage: 80 MG,2 TAB,  QD
     Route: 065
     Dates: start: 20190404
  5. GABAPENTIN. [Concomitant]
     Active Substance: GABAPENTIN
     Dosage: 1 DF (1 CAP), TWICE DAILY
     Route: 048
     Dates: start: 20190404
  6. DIPHENHYDRAMINE. [Concomitant]
     Active Substance: DIPHENHYDRAMINE
     Dosage: 50 MG, UNK
     Route: 042
     Dates: start: 20190430
  7. NORMAL SALINE [Concomitant]
     Active Substance: SODIUM CHLORIDE
     Indication: FLUSHING
     Dosage: 0.9% DILUTANT
     Route: 042
     Dates: start: 20190430
  8. SOLU-MEDROL [Concomitant]
     Active Substance: METHYLPREDNISOLONE SODIUM SUCCINATE
     Dosage: 125 MG, UNK
     Route: 042
     Dates: start: 20190430
  9. ZYRTEC [Concomitant]
     Active Substance: CETIRIZINE HYDROCHLORIDE
     Dosage: 10 MG, QD
     Route: 065
     Dates: start: 20190430
  10. ACETAMINOPHEN. [Concomitant]
     Active Substance: ACETAMINOPHEN
     Indication: PREMEDICATION
     Dosage: 500 MG, UNK
     Route: 048
     Dates: start: 20190430
  11. HEADACHE RELIEF [Concomitant]
     Active Substance: ACETAMINOPHEN\ASPIRIN\CAFFEINE
     Dosage: 500 MG, PRN
     Route: 048
     Dates: start: 20190430
  12. AMITRIPTYLINE [Concomitant]
     Active Substance: AMITRIPTYLINE
     Dosage: 1 TAB AT BEDTIME
     Route: 048
     Dates: start: 20190404
  13. PROAIR HFA [Concomitant]
     Active Substance: ALBUTEROL SULFATE
     Dosage: 1 DF (1 PUFF), QD
     Route: 048
     Dates: start: 20190404
  14. DOCUSATE SODIUM. [Concomitant]
     Active Substance: DOCUSATE SODIUM
     Dosage: 100 MG, PRN
     Route: 048
     Dates: start: 20190430
  15. SINGULAIR [Concomitant]
     Active Substance: MONTELUKAST SODIUM
     Dosage: 10 MG, QD
     Route: 048
     Dates: start: 20190404
  16. METFORMIN [Concomitant]
     Active Substance: METFORMIN HYDROCHLORIDE
     Dosage: 2 TAB BY MOUTH TWICE DAILY
     Route: 048
     Dates: start: 20190404
  17. VITAMIN D3 [Concomitant]
     Active Substance: CHOLECALCIFEROL
     Dosage: 1 DF (1 CAP), QD
     Route: 048
     Dates: start: 20190404
  18. HEPARIN [Concomitant]
     Active Substance: HEPARIN SODIUM
     Indication: FLUSHING
     Dosage: 100 UN/ML, UNK
     Route: 042
     Dates: start: 20190430
  19. EPINEPHRINE. [Concomitant]
     Active Substance: EPINEPHRINE
     Indication: ANAPHYLACTIC REACTION
     Dosage: 0.3 MG, PRN
     Route: 030
     Dates: start: 20190430
  20. MIRTAZAPINE. [Concomitant]
     Active Substance: MIRTAZAPINE
     Dosage: 15 MG, HS
     Route: 048
     Dates: start: 20190430
  21. BENADRYL [Concomitant]
     Active Substance: DIPHENHYDRAMINE HYDROCHLORIDE
     Dosage: 25 MG, BID
     Route: 065
     Dates: start: 20190430
  22. OMEPRAZOLE;SODIUM BICARBONATE [Concomitant]
     Active Substance: OMEPRAZOLE\SODIUM BICARBONATE
     Dosage: 40 MG, BID
     Route: 048
     Dates: start: 20190430
  23. SODIUM CHLORIDE. [Concomitant]
     Active Substance: SODIUM CHLORIDE
     Dosage: 0.9 %, UNK
     Route: 042
     Dates: start: 20190430
  24. LISINOPRIL. [Concomitant]
     Active Substance: LISINOPRIL
     Dosage: 1 DF,(1 TAB) QD
     Route: 048
     Dates: start: 20190404
  25. STERILE WATER [Concomitant]
     Active Substance: WATER
     Dosage: 1 EACH UNK UNK, UNK
     Route: 042
     Dates: start: 20190430
  26. GAS-X [Concomitant]
     Active Substance: DIMETHICONE
     Dosage: 125 MG, QD
     Route: 048
     Dates: start: 20190430
  27. GARCINIA CAMBOGIA [GARCINIA GUMMI-GUTTA] [Concomitant]
     Dosage: 0.2-500 MG, PRN
     Route: 048
     Dates: start: 20190430
  28. SPIRIVA [Concomitant]
     Active Substance: TIOTROPIUM BROMIDE MONOHYDRATE
     Dosage: 1 PUFF, QD
     Route: 048
     Dates: start: 20190404
  29. IRON [Concomitant]
     Active Substance: IRON
     Dosage: 1 TAB BY MOUTH DAILY
     Route: 048
     Dates: start: 20190430
  30. FABRAZYME [Suspect]
     Active Substance: AGALSIDASE BETA
     Indication: FABRY^S DISEASE
     Dosage: 110 MG, QOW
     Route: 041
     Dates: start: 20190509
  31. OMEPRAZOLE. [Concomitant]
     Active Substance: OMEPRAZOLE
     Dosage: 2 DF (2 TAB), QD
     Route: 048
     Dates: start: 20190404

REACTIONS (3)
  - Nausea [Unknown]
  - Vomiting [Unknown]
  - Pruritus [Unknown]

NARRATIVE: CASE EVENT DATE: 2019
